FAERS Safety Report 19487491 (Version 1)
Quarter: 2021Q3

REPORT INFORMATION
  Report Type: Spontaneous
  Country: US (occurrence: US)
  Receive Date: 20210702
  Receipt Date: 20210702
  Transmission Date: 20211014
  Serious: No
  Sender: FDA-Public Use
  Company Number: US-CUMBERLAND-2021-US-000018

PATIENT
  Age: 82 Year
  Sex: Male

DRUGS (1)
  1. KRISTALOSE [Suspect]
     Active Substance: LACTULOSE

REACTIONS (2)
  - Gastrointestinal pain [Recovered/Resolved]
  - Dry mouth [Unknown]
